FAERS Safety Report 13922252 (Version 2)
Quarter: 2017Q3

REPORT INFORMATION
  Report Type: Report from Study
  Country: US (occurrence: US)
  Receive Date: 20170830
  Receipt Date: 20170915
  Transmission Date: 20171127
  Serious: Yes (Other)
  Sender: FDA-Public Use
  Company Number: US-TEVA-801596USA

PATIENT
  Age: 17 Year
  Sex: Male

DRUGS (2)
  1. CLARAVIS [Suspect]
     Active Substance: ISOTRETINOIN
     Route: 065
  2. CLARAVIS [Suspect]
     Active Substance: ISOTRETINOIN
     Route: 065

REACTIONS (1)
  - Self-injurious ideation [Unknown]

NARRATIVE: CASE EVENT DATE: 20170801
